FAERS Safety Report 7161673-6 (Version None)
Quarter: 2010Q4

REPORT INFORMATION
  Report Type: 
  Country: None (occurrence: None)
  Receive Date: 20101201
  Receipt Date: 20101116
  Transmission Date: 20110411
  Serious: Yes (Hospitalization)
  Sender: FDA-Public Use
  Company Number: IDA-00461

PATIENT
  Age: 58 Year
  Sex: Male

DRUGS (3)
  1. PROPRANOLOL [Suspect]
     Indication: HYPERTENSION
     Dosage: 160 MG DAILY ORAL FORMULATION: UNKNOWN
     Route: 048
     Dates: start: 20000101
  2. (SORAFENIB) [Suspect]
     Indication: HEPATIC NEOPLASM MALIGNANT
     Dosage: 200 MG BID ORAL FORMULATION: UNKNOWN
     Route: 048
     Dates: start: 20100821, end: 20100903
  3. RABEPRAZOLE SODIUM [Concomitant]

REACTIONS (2)
  - CONDITION AGGRAVATED [None]
  - PSORIASIS [None]
